FAERS Safety Report 22384269 (Version 1)
Quarter: 2023Q2

REPORT INFORMATION
  Report Type: Spontaneous
  Country: US (occurrence: US)
  Receive Date: 20230530
  Receipt Date: 20230530
  Transmission Date: 20230722
  Serious: Yes (Death, Other)
  Sender: FDA-Public Use
  Company Number: US-BAYER-2023A070430

PATIENT
  Age: 79 Year
  Sex: Male

DRUGS (2)
  1. ASPIRIN [Interacting]
     Active Substance: ASPIRIN
     Indication: Postoperative care
  2. ENOXAPARIN [Interacting]
     Active Substance: ENOXAPARIN
     Indication: Postoperative care

REACTIONS (7)
  - Haemothorax [Fatal]
  - Pneumothorax [Fatal]
  - Labelled drug-drug interaction medication error [Fatal]
  - Renal failure [None]
  - Hypoxia [None]
  - Haemoglobin decreased [None]
  - Hypotension [None]
